FAERS Safety Report 5318077-8 (Version None)
Quarter: 2007Q1

REPORT INFORMATION
  Report Type: 
  Country: None (occurrence: None)
  Receive Date: 20070201
  Receipt Date: 20060302
  Transmission Date: 20070707
  Serious: Yes (Hospitalization)
  Sender: FDA-Public Use
  Company Number: MEDI-0004241

PATIENT
  Age: 47 Year
  Sex: Male
  Weight: 92.5338 kg

DRUGS (12)
  1. ETHYOL [Suspect]
     Indication: CHEMOTHERAPY
     Dosage: SEE IMAGE
     Route: 058
     Dates: start: 20060208, end: 20060221
  2. ETHYOL [Suspect]
     Indication: RADIOTHERAPY
     Dosage: SEE IMAGE
     Route: 058
     Dates: start: 20060208, end: 20060221
  3. ETHYOL [Suspect]
     Indication: CHEMOTHERAPY
     Dosage: SEE IMAGE
     Route: 058
     Dates: start: 20060228, end: 20060228
  4. ETHYOL [Suspect]
     Indication: RADIOTHERAPY
     Dosage: SEE IMAGE
     Route: 058
     Dates: start: 20060228, end: 20060228
  5. FLUOROURACIL [Concomitant]
  6. CISPLATIN [Concomitant]
  7. RADIATION THERAPY [Concomitant]
  8. ZOFRAN [Concomitant]
  9. ZYRTEC [Concomitant]
  10. SALAGEN [Concomitant]
  11. LORTAB [Concomitant]
  12. MUCINEX [Concomitant]

REACTIONS (7)
  - FATIGUE [None]
  - INJECTION SITE REACTION [None]
  - MALAISE [None]
  - PRURITUS [None]
  - PYREXIA [None]
  - RASH PAPULAR [None]
  - VOMITING [None]
